FAERS Safety Report 8598707-8 (Version None)
Quarter: 2012Q3

REPORT INFORMATION
  Report Type: 
  Country: None (occurrence: None)
  Receive Date: 20120803
  Receipt Date: 20120723
  Transmission Date: 20120928
  Serious: Yes (Hospitalization)
  Sender: FDA-Public Use
  Company Number: KV201200144

PATIENT
  Age: 34 Year
  Sex: Female
  Weight: 95.7 kg

DRUGS (1)
  1. MAKENA [Suspect]
     Indication: PREMATURE DELIVERY
     Dosage: 250 MG, ONCE WEEKLY, INTRAMUSCULAR
     Route: 030
     Dates: start: 20120411, end: 20120503

REACTIONS (4)
  - STILLBIRTH [None]
  - CERVIX HAEMORRHAGE UTERINE [None]
  - AMNIORRHOEA [None]
  - MATERNAL EXPOSURE DURING PREGNANCY [None]
